FAERS Safety Report 7033285-6 (Version None)
Quarter: 2010Q4

REPORT INFORMATION
  Report Type: 
  Country: None (occurrence: None)
  Receive Date: 20101007
  Receipt Date: 20100930
  Transmission Date: 20110411
  Serious: Yes (Other)
  Sender: FDA-Public Use
  Company Number: A0885136A

PATIENT
  Age: 36 Year
  Sex: Female

DRUGS (3)
  1. EPIVIR [Suspect]
     Indication: ANTIVIRAL TREATMENT
     Route: 048
     Dates: start: 20050907, end: 20090804
  2. ISENTRESS [Suspect]
     Indication: ANTIVIRAL TREATMENT
     Dosage: 800MG PER DAY
     Route: 048
     Dates: start: 20050810, end: 20090804
  3. VIREAD [Suspect]
     Indication: ANTIVIRAL TREATMENT
     Route: 048
     Dates: start: 20050907, end: 20090804

REACTIONS (3)
  - ABORTION SPONTANEOUS [None]
  - DRUG EXPOSURE DURING PREGNANCY [None]
  - ULTRASOUND ANTENATAL SCREEN ABNORMAL [None]
